FAERS Safety Report 13859135 (Version 8)
Quarter: 2018Q4

REPORT INFORMATION
  Report Type: Report from Study
  Country: JP (occurrence: JP)
  Receive Date: 20170811
  Receipt Date: 20181003
  Transmission Date: 20190204
  Serious: Yes (Other)
  Sender: FDA-Public Use
  Company Number: JP-UCBSA-2017030385

PATIENT
  Age: 58 Year
  Sex: Female
  Weight: 51 kg

DRUGS (28)
  1. PREDNISOLONE. [Concomitant]
     Active Substance: PREDNISOLONE
     Indication: RHEUMATOID ARTHRITIS
     Dosage: 4 MG, UNK
     Route: 048
  2. PREDNISOLONE. [Concomitant]
     Active Substance: PREDNISOLONE
     Dosage: 1 MG, UNK
     Route: 048
     Dates: start: 20150717
  3. PREDNISOLONE. [Concomitant]
     Active Substance: PREDNISOLONE
     Dosage: 3 MG, UNK
     Route: 048
  4. PROMAC [Concomitant]
     Active Substance: NITROFURANTOIN
     Indication: GASTRITIS
     Dosage: 150 MG DAILY
     Route: 048
  5. IGURATIMOD [Concomitant]
     Active Substance: IGURATIMOD
     Indication: RHEUMATOID ARTHRITIS
     Dosage: 50 MG, UNK
     Route: 048
     Dates: start: 20131011
  6. ALFAROL [Concomitant]
     Active Substance: ALFACALCIDOL
     Indication: PROPHYLAXIS
     Dosage: 0.5 ?G, UNK
     Route: 048
  7. MUCOSOLVAN [Concomitant]
     Active Substance: AMBROXOL HYDROCHLORIDE
     Indication: ASTHMA
     Dosage: 45 MG, UNK
     Route: 048
  8. DICLOFENAC SODIUM. [Concomitant]
     Active Substance: DICLOFENAC SODIUM
     Indication: RHEUMATOID ARTHRITIS
     Dosage: 75 MG, UNK
     Route: 048
  9. FEBURIC [Concomitant]
     Active Substance: FEBUXOSTAT
     Indication: HYPERURICAEMIA
     Dosage: 10 MG, UNK
     Route: 048
     Dates: start: 20140731
  10. PARIET [Concomitant]
     Active Substance: RABEPRAZOLE SODIUM
     Indication: PROPHYLAXIS
     Dosage: 10 MG, UNK
     Route: 048
  11. CRESTOR [Concomitant]
     Active Substance: ROSUVASTATIN CALCIUM
     Indication: HYPERLIPIDAEMIA
     Dosage: 2.5 MG, UNK
     Route: 048
  12. SALAGEN [Concomitant]
     Active Substance: PILOCARPINE HYDROCHLORIDE
     Indication: SJOGREN^S SYNDROME
     Dosage: 5 MG DAILY
     Dates: start: 20151009
  13. CERTOLIZUMAB PEGOL RA [Suspect]
     Active Substance: CERTOLIZUMAB PEGOL
     Indication: RHEUMATOID ARTHRITIS
     Dosage: 400 MG, EV 2 WEEKS(QOW)
     Route: 058
     Dates: start: 20140421, end: 20140522
  14. CERTOLIZUMAB PEGOL RA [Suspect]
     Active Substance: CERTOLIZUMAB PEGOL
     Dosage: 200 MG, EV 2 WEEKS(QOW)
     Route: 058
     Dates: start: 20140606, end: 20150911
  15. CERTOLIZUMAB PEGOL RA [Suspect]
     Active Substance: CERTOLIZUMAB PEGOL
     Dosage: 200 MG, EV 2 WEEKS(QOW)
     Route: 058
     Dates: start: 20151009
  16. ISCOTIN [Concomitant]
     Active Substance: ISONIAZID
     Indication: PROPHYLAXIS
     Dosage: 300 MG, UNK
     Route: 048
  17. FERROUS FUMARATE [Concomitant]
     Active Substance: FERROUS FUMARATE
     Indication: IRON DEFICIENCY ANAEMIA
  18. SENNA [Concomitant]
     Active Substance: SENNA LEAF\SENNOSIDES\SENNOSIDES A AND B
     Indication: PROPHYLAXIS
     Dosage: 80 MG
     Dates: start: 20151009
  19. SHAKUYAKUKANZOTO [Concomitant]
     Active Substance: HERBALS
     Indication: BACK PAIN
     Dosage: 2.5 G, UNK
     Route: 048
     Dates: start: 20150522
  20. SHAKUYAKUKANZOTO [Concomitant]
     Active Substance: HERBALS
     Dosage: UNK
     Dates: start: 20151009
  21. PREDNISOLONE. [Concomitant]
     Active Substance: PREDNISOLONE
     Dosage: 3 MG, UNK
     Route: 048
  22. SENNA [Concomitant]
     Active Substance: SENNA LEAF\SENNOSIDES\SENNOSIDES A AND B
     Indication: CONSTIPATION
     Dosage: 80 MG, UNK
     Route: 048
     Dates: start: 20150116
  23. RIMATIL [Concomitant]
     Active Substance: BUCILLAMINE
     Indication: RHEUMATOID ARTHRITIS
     Dosage: UNK MG, UNK
     Route: 048
     Dates: end: 20140911
  24. PREDNISOLONE. [Concomitant]
     Active Substance: PREDNISOLONE
     Dosage: 2 MG, UNK
     Route: 048
     Dates: end: 20150716
  25. PREDNISOLONE. [Concomitant]
     Active Substance: PREDNISOLONE
     Dosage: 3 MG, UNK
     Route: 048
  26. HYALEIN [Concomitant]
     Active Substance: HYALURONATE SODIUM
     Indication: DRY EYE
     Dosage: UNK
     Route: 047
     Dates: start: 20150717
  27. RIMATIL [Concomitant]
     Active Substance: BUCILLAMINE
     Dosage: UNK
     Dates: start: 20160304
  28. MUCOSOLVAN [Concomitant]
     Active Substance: AMBROXOL HYDROCHLORIDE
     Indication: PRODUCT USED FOR UNKNOWN INDICATION
     Dosage: UNK
     Route: 048

REACTIONS (3)
  - Herpes zoster [Recovering/Resolving]
  - Chillblains [Recovering/Resolving]
  - Iron deficiency anaemia [Recovered/Resolved]

NARRATIVE: CASE EVENT DATE: 20150919
